FAERS Safety Report 10208587 (Version 1)
Quarter: 2014Q2

REPORT INFORMATION
  Report Type: Spontaneous
  Country: US (occurrence: US)
  Receive Date: 20140530
  Receipt Date: 20140530
  Transmission Date: 20141212
  Serious: No
  Sender: FDA-Public Use
  Company Number: US-ASTRAZENECA-2014SE34984

PATIENT
  Age: 27464 Day
  Sex: Male
  Weight: 97.5 kg

DRUGS (6)
  1. LISINOPRIL [Suspect]
     Route: 048
     Dates: start: 20140428
  2. BRILINTA [Suspect]
     Indication: MYOCARDIAL INFARCTION
     Route: 048
     Dates: start: 20140428
  3. NIACIN [Concomitant]
     Dosage: UNKNOWN UNK
     Route: 048
  4. CARVEDILOL [Concomitant]
     Route: 048
     Dates: start: 20140428
  5. ATORVASTATIN [Concomitant]
     Route: 048
     Dates: start: 20140428
  6. AMBIEN [Concomitant]
     Indication: SLEEP DISORDER
     Route: 048
     Dates: start: 2013

REACTIONS (5)
  - Contusion [Unknown]
  - Weight decreased [Unknown]
  - Insomnia [Unknown]
  - Adverse event [Unknown]
  - Stress at work [Unknown]
